FAERS Safety Report 14358747 (Version 2)
Quarter: 2018Q2

REPORT INFORMATION
  Report Type: Report from Study
  Country: US (occurrence: US)
  Receive Date: 20180105
  Receipt Date: 20180619
  Transmission Date: 20180711
  Serious: No
  Sender: FDA-Public Use
  Company Number: US-SA-2017SA253507

PATIENT
  Age: 80 Year
  Sex: Female
  Weight: 63.5 kg

DRUGS (2)
  1. DUPILUMAB [Suspect]
     Active Substance: DUPILUMAB
     Indication: DERMATITIS ATOPIC
     Dosage: 600 MG,1X
     Route: 058
     Dates: start: 20171031, end: 20171031
  2. DUPILUMAB [Suspect]
     Active Substance: DUPILUMAB
     Dosage: 300 MG,QOW
     Route: 058
     Dates: start: 20171110

REACTIONS (7)
  - Asthenia [Not Recovered/Not Resolved]
  - Drug ineffective [Unknown]
  - Eye pruritus [Not Recovered/Not Resolved]
  - Rash [Recovering/Resolving]
  - Limb discomfort [Not Recovered/Not Resolved]
  - Eczema [Recovering/Resolving]
  - Pruritus [Recovering/Resolving]

NARRATIVE: CASE EVENT DATE: 2017
